FAERS Safety Report 21681490 (Version 1)
Quarter: 2022Q4

REPORT INFORMATION
  Report Type: Spontaneous
  Country: CA (occurrence: CA)
  Receive Date: 20221205
  Receipt Date: 20221205
  Transmission Date: 20230112
  Serious: Yes (Hospitalization, Other)
  Sender: FDA-Public Use
  Company Number: CA-GLAXOSMITHKLINE-CA2022AMR178531

PATIENT

DRUGS (1)
  1. SUMATRIPTAN SUCCINATE [Suspect]
     Active Substance: SUMATRIPTAN SUCCINATE
     Indication: Headache
     Dosage: 100 MG, AS REQUIRED
     Route: 048

REACTIONS (2)
  - Reversible cerebral vasoconstriction syndrome [Unknown]
  - Thunderclap headache [Unknown]
